FAERS Safety Report 10165764 (Version 1)
Quarter: 2014Q2

REPORT INFORMATION
  Report Type: Spontaneous
  Country: US (occurrence: US)
  Receive Date: 20140510
  Receipt Date: 20140510
  Transmission Date: 20141212
  Serious: Yes (Other)
  Sender: FDA-Public Use
  Company Number: US-BRISTOL-MYERS SQUIBB COMPANY-19927300

PATIENT
  Age: 52 Year
  Sex: Male

DRUGS (5)
  1. BYDUREON [Suspect]
  2. LANTUS [Concomitant]
     Dosage: 150 UNITS A DAY
  3. HUMALOG [Concomitant]
     Dosage: 20 UNITS A DAY
  4. GLUMETZA [Concomitant]
  5. GLIPIZIDE [Concomitant]

REACTIONS (1)
  - Angioedema [Unknown]
